FAERS Safety Report 10663080 (Version 2)
Quarter: 2014Q4

REPORT INFORMATION
  Report Type: Spontaneous
  Country: US (occurrence: US)
  Receive Date: 20141218
  Receipt Date: 20141224
  Transmission Date: 20150529
  Serious: Yes (Other)
  Sender: FDA-Public Use
  Company Number: US-GLAXOSMITHKLINE-A1089203A

PATIENT
  Sex: Male

DRUGS (13)
  1. VITAMIN D [Concomitant]
     Active Substance: CHOLECALCIFEROL
  2. WELCHOL [Concomitant]
     Active Substance: COLESEVELAM HYDROCHLORIDE
  3. DIFLUCAN [Concomitant]
     Active Substance: FLUCONAZOLE
  4. ACICLOVIR [Concomitant]
     Active Substance: ACYCLOVIR
  5. AMILORIDE [Concomitant]
     Active Substance: AMILORIDE
  6. ASPIRIN. [Concomitant]
     Active Substance: ASPIRIN
  7. DECADRON [Concomitant]
     Active Substance: DEXAMETHASONE
  8. MEKINIST [Suspect]
     Active Substance: TRAMETINIB DIMETHYL SULFOXIDE
     Indication: PLASMA CELL MYELOMA
     Dates: start: 20140819
  9. FENTANYL TRANSDERMAL SYSTEM [Concomitant]
     Active Substance: FENTANYL
  10. FISH OIL [Concomitant]
     Active Substance: FISH OIL
  11. OXYCODONE [Concomitant]
     Active Substance: OXYCODONE
  12. MAGNESIUM [Concomitant]
     Active Substance: MAGNESIUM
  13. VITAMIN C [Concomitant]
     Active Substance: ASCORBIC ACID

REACTIONS (7)
  - Peripheral swelling [Not Recovered/Not Resolved]
  - Decreased appetite [Not Recovered/Not Resolved]
  - Mobility decreased [Not Recovered/Not Resolved]
  - Performance status decreased [Unknown]
  - Diplegia [Unknown]
  - Walking aid user [Not Recovered/Not Resolved]
  - Gait disturbance [Unknown]

NARRATIVE: CASE EVENT DATE: 2014
